FAERS Safety Report 13521712 (Version 2)
Quarter: 2017Q3

REPORT INFORMATION
  Report Type: Spontaneous
  Country: GB (occurrence: GB)
  Receive Date: 20170508
  Receipt Date: 20170801
  Transmission Date: 20171127
  Serious: Yes (Disabling, Other)
  Sender: FDA-Public Use
  Company Number: GB-TEVA-760849ACC

PATIENT
  Age: 21 Year
  Sex: Female
  Weight: 60 kg

DRUGS (1)
  1. VENLAFAXINE [Suspect]
     Active Substance: VENLAFAXINE HYDROCHLORIDE
     Indication: DEPRESSION
     Route: 048
     Dates: start: 20150901, end: 20170201

REACTIONS (3)
  - Urticaria [Recovered/Resolved with Sequelae]
  - Disturbance in attention [Unknown]
  - Pruritus [Unknown]

NARRATIVE: CASE EVENT DATE: 20151001
